FAERS Safety Report 7020610-5 (Version None)
Quarter: 2010Q3

REPORT INFORMATION
  Report Type: 
  Country: None (occurrence: None)
  Receive Date: 20100929
  Receipt Date: 20100928
  Transmission Date: 20110219
  Serious: Yes (Hospitalization)
  Sender: FDA-Public Use
  Company Number: A0882413A

PATIENT
  Age: 87 Year
  Sex: Female
  Weight: 50.3 kg

DRUGS (9)
  1. DIGOXIN [Suspect]
     Indication: ATRIAL FIBRILLATION
     Route: 048
  2. COUMADIN [Concomitant]
     Dosage: 2MG PER DAY
     Dates: start: 19960101
  3. LOPRESSOR [Concomitant]
  4. CELEBREX [Concomitant]
     Dosage: 200MG AT NIGHT
     Route: 048
  5. ATORVASTATIN CALCIUM [Concomitant]
     Dosage: 20MG AT NIGHT
     Route: 048
  6. PEPCID [Concomitant]
     Dosage: 20MG PER DAY
     Route: 048
  7. OXYCODONE [Concomitant]
     Dosage: 325MG AS REQUIRED
     Route: 048
  8. CALCIUM + D [Concomitant]
     Dosage: 1TAB PER DAY
     Route: 048
  9. CYMBALTA [Concomitant]
     Dosage: 60MGD PER DAY
     Route: 048

REACTIONS (9)
  - BLOOD CREATININE INCREASED [None]
  - BLOOD PRESSURE DECREASED [None]
  - BRADYCARDIA [None]
  - COMMUNICATION DISORDER [None]
  - HAEMOGLOBIN DECREASED [None]
  - HYPERKALAEMIA [None]
  - MENTAL STATUS CHANGES [None]
  - PULSE PRESSURE DECREASED [None]
  - THERAPEUTIC AGENT TOXICITY [None]
